FAERS Safety Report 13290648 (Version 2)
Quarter: 2017Q1

REPORT INFORMATION
  Report Type: Spontaneous
  Country: US (occurrence: US)
  Receive Date: 20170302
  Receipt Date: 20170324
  Transmission Date: 20170428
  Serious: Yes (Other)
  Sender: FDA-Public Use
  Company Number: US-DEPOMED, INC.-US-2017DEP000448

PATIENT

DRUGS (1)
  1. ZIPSOR [Suspect]
     Active Substance: DICLOFENAC POTASSIUM
     Indication: RADICULOPATHY
     Dosage: 25 MG, QID
     Route: 048
     Dates: start: 20160908

REACTIONS (2)
  - Visual impairment [Recovering/Resolving]
  - Product use issue [Recovered/Resolved]
